FAERS Safety Report 8508508-4 (Version None)
Quarter: 2012Q3

REPORT INFORMATION
  Report Type: 
  Country: None (occurrence: None)
  Receive Date: 20120713
  Receipt Date: 20120704
  Transmission Date: 20120928
  Serious: Yes (Hospitalization, Other)
  Sender: FDA-Public Use
  Company Number: MX-NOVOPROD-352612

PATIENT
  Age: 41 Year
  Sex: Female
  Weight: 104.9 kg

DRUGS (5)
  1. VICTOZA [Suspect]
     Dosage: 1.2 MG, QD
     Route: 058
     Dates: start: 20110822, end: 20110828
  2. VICTOZA [Suspect]
     Dosage: 2.4 MG, QD
     Route: 058
     Dates: start: 20110905, end: 20110911
  3. VICTOZA [Suspect]
     Dosage: 1.8 MG, QD
     Route: 058
     Dates: start: 20110829, end: 20110904
  4. VICTOZA [Suspect]
     Indication: OBESITY
     Dosage: 0.6 MG, QD
     Route: 058
     Dates: start: 20110815, end: 20110821
  5. VICTOZA [Suspect]
     Dosage: 3.0 MG, QD
     Route: 058
     Dates: start: 20110912, end: 20120524

REACTIONS (1)
  - CHOLELITHIASIS [None]
